FAERS Safety Report 9061951 (Version 1)
Quarter: 2013Q1

REPORT INFORMATION
  Report Type: Spontaneous
  Country: US (occurrence: US)
  Receive Date: 20130129
  Receipt Date: 20130129
  Transmission Date: 20140127
  Serious: Yes (Other)
  Sender: FDA-Public Use
  Company Number: US-MYLANLABS-2013S1001454

PATIENT
  Age: 60 Year
  Sex: Female

DRUGS (11)
  1. WARFARIN [Suspect]
     Indication: THROMBOSIS
     Dosage: 5MG DAILY; GOAL INR 2-3
     Route: 048
  2. DICLOXACILLIN [Interacting]
     Route: 048
  3. CLINDAMYCIN [Suspect]
     Route: 048
  4. VANCOMYCIN [Concomitant]
     Route: 042
  5. ENOXAPARIN SODIUM [Concomitant]
     Indication: THROMBOSIS
     Route: 058
  6. AMOXI-CLAVULANICO [Concomitant]
     Dosage: 875/125MG
     Route: 048
  7. METOPROLOL [Concomitant]
     Dosage: 100MG DAILY
     Route: 048
  8. LEVOTHYROXINE SODIUM [Concomitant]
     Dosage: 150 MICROG DAILY
     Route: 048
  9. LIOTHYRONINE [Concomitant]
     Dosage: 5 MICROG DAILY
     Route: 048
  10. ESTERIFIED ESTROGENS AND METHYLTESTOSTERONE [Concomitant]
     Dosage: 0.625MG DAILY
     Route: 048
  11. TRAMADOL [Concomitant]
     Indication: PAIN
     Dosage: 50MG AS NEEDED
     Route: 048

REACTIONS (3)
  - Anticoagulation drug level below therapeutic [Recovered/Resolved]
  - Drug interaction [Recovered/Resolved]
  - Gastrointestinal disorder [Unknown]
